FAERS Safety Report 5425693-1 (Version None)
Quarter: 2007Q3

REPORT INFORMATION
  Report Type: 
  Country: None (occurrence: None)
  Receive Date: 20070731
  Receipt Date: 20070331
  Transmission Date: 20080115
  Serious: No
  Sender: FDA-Public Use
  Company Number: 2007PV032743

PATIENT
  Age: 44 Year
  Sex: Female
  Weight: 141.5 kg

DRUGS (4)
  1. EXENATIDE(EXENATIDE) PEN,DISPOSABLE [Suspect]
     Indication: TYPE 2 DIABETES MELLITUS
     Dosage: 5 UG, 2/D, SUBCUTANEOUS
     Route: 058
     Dates: start: 20070301
  2. JANUVIA [Concomitant]
  3. GLUMETZA [Concomitant]
  4. STARLIX [Concomitant]

REACTIONS (5)
  - DRUG INEFFECTIVE [None]
  - HYPERGLYCAEMIA [None]
  - HYPERSENSITIVITY [None]
  - SINUS DISORDER [None]
  - WEIGHT DECREASED [None]
